FAERS Safety Report 7714198-0 (Version None)
Quarter: 2011Q3

REPORT INFORMATION
  Report Type: 
  Country: None (occurrence: None)
  Receive Date: 20110829
  Receipt Date: 20110818
  Transmission Date: 20111222
  Serious: No
  Sender: FDA-Public Use
  Company Number: US-BIOGENIDEC-2010BI009748

PATIENT
  Sex: Female

DRUGS (1)
  1. TYSABRI [Suspect]
     Indication: MULTIPLE SCLEROSIS
     Route: 042
     Dates: start: 20100122

REACTIONS (9)
  - FUNGAL INFECTION [None]
  - HEADACHE [None]
  - PYREXIA [None]
  - PAIN [None]
  - FATIGUE [None]
  - ORAL CANDIDIASIS [None]
  - DRUG ADMINISTRATION ERROR [None]
  - SENSORY DISTURBANCE [None]
  - VAGINAL INFECTION [None]
